FAERS Safety Report 6878662-9 (Version None)
Quarter: 2010Q3

REPORT INFORMATION
  Report Type: 
  Country: None (occurrence: None)
  Receive Date: 20100728
  Receipt Date: 20100721
  Transmission Date: 20110219
  Serious: Yes (Hospitalization)
  Sender: FDA-Public Use
  Company Number: A0872592A

PATIENT
  Age: 70 Year
  Sex: Male

DRUGS (1)
  1. ROSIGLITAZONE MALEATE [Suspect]
     Dosage: 4MG TWICE PER DAY
     Route: 048
     Dates: start: 20030115, end: 20070925

REACTIONS (3)
  - CARDIAC FAILURE CONGESTIVE [None]
  - TRANSFUSION [None]
  - WEIGHT INCREASED [None]
